FAERS Safety Report 5630747-0 (Version None)
Quarter: 2008Q1

REPORT INFORMATION
  Report Type: 
  Country: None (occurrence: None)
  Receive Date: 20080212
  Receipt Date: 20080204
  Transmission Date: 20080703
  Serious: Yes (Death)
  Sender: FDA-Public Use
  Company Number: 2008-00924

PATIENT
  Age: 49 Year
  Sex: Male

DRUGS (9)
  1. HYDROXYZINE HYDROCHLORIDE                   (HYDROXYZINE HYDROCHLORIDE [Suspect]
  2. FUROSEMIDE [Suspect]
  3. GABAPENTIN                                (GABAPENTIN) CAPSULE [Suspect]
  4. TRAZODONE HYDROCHLORIDE                              (TRAZODONE HYDROC [Suspect]
  5. LISINOPRIL/HYDROCHLOROTHIAZID UNKNOWN STRENGTH                     (LI [Suspect]
  6. LISINOPRIL [Suspect]
  7. LAMOTRIGINE [Suspect]
  8. VENLAFAXINE HCL [Suspect]
  9. SILDENAFIL CITRATE [Suspect]

REACTIONS (1)
  - CARDIO-RESPIRATORY ARREST [None]
